FAERS Safety Report 9292105 (Version 2)
Quarter: 2013Q4

REPORT INFORMATION
  Report Type: Report from Study
  Country: CZ (occurrence: CZ)
  Receive Date: 20130516
  Receipt Date: 20131208
  Transmission Date: 20140711
  Serious: Yes (Other)
  Sender: FDA-Public Use
  Company Number: CZ-ROCHE-1225169

PATIENT
  Age: 86 Year
  Sex: Female

DRUGS (1)
  1. RANIBIZUMAB [Suspect]
     Indication: AGE-RELATED MACULAR DEGENERATION
     Dosage: RIGHT EYE
     Route: 050
     Dates: start: 20090511

REACTIONS (1)
  - Subretinal fibrosis [Recovered/Resolved with Sequelae]
